FAERS Safety Report 9103946 (Version 2)
Quarter: 2013Q1

REPORT INFORMATION
  Report Type: Spontaneous
  Country: DE (occurrence: DE)
  Receive Date: 20130219
  Receipt Date: 20130306
  Transmission Date: 20140127
  Serious: No
  Sender: FDA-Public Use
  Company Number: DE-ROCHE-1192251

PATIENT
  Age: 7 Year
  Sex: Male

DRUGS (1)
  1. TAMIFLU [Suspect]
     Indication: INFLUENZA
     Route: 048
     Dates: start: 20130221, end: 20130221

REACTIONS (2)
  - Overdose [Unknown]
  - No adverse event [Unknown]
